FAERS Safety Report 14832898 (Version 2)
Quarter: 2018Q2

REPORT INFORMATION
  Report Type: Spontaneous
  Country: JP (occurrence: JP)
  Receive Date: 20180501
  Receipt Date: 20180522
  Transmission Date: 20180711
  Serious: Yes (Death)
  Sender: FDA-Public Use
  Company Number: JP-OTSUKA-2018_006750AA

PATIENT
  Age: 96 Year
  Sex: Male

DRUGS (13)
  1. SAMSCA [Suspect]
     Active Substance: TOLVAPTAN
     Indication: CARDIAC FAILURE
     Dosage: 15 MG, QD, MORNING
     Route: 048
     Dates: start: 20171226
  2. FUROSEMIDE. [Concomitant]
     Active Substance: FUROSEMIDE
     Indication: PRODUCT USED FOR UNKNOWN INDICATION
     Dosage: 40 MG, QD, MORNING
     Route: 065
     Dates: start: 20171226, end: 20180211
  3. SAMSCA [Suspect]
     Active Substance: TOLVAPTAN
     Indication: OEDEMA DUE TO CARDIAC DISEASE
     Dosage: 30 MG, QD
     Route: 048
     Dates: start: 20180211, end: 20180211
  4. LASIX [Suspect]
     Active Substance: FUROSEMIDE
     Dosage: 40MG, UNK
     Route: 065
  5. ADALAT [Concomitant]
     Active Substance: NIFEDIPINE
     Indication: PRODUCT USED FOR UNKNOWN INDICATION
     Dosage: 20 MG, QD, MORNING
     Route: 065
     Dates: start: 20171226, end: 20180211
  6. ALDACTONE [Suspect]
     Active Substance: SPIRONOLACTONE
     Dosage: 100 MG, QD
     Route: 048
  7. LASIX [Suspect]
     Active Substance: FUROSEMIDE
     Indication: PRODUCT USED FOR UNKNOWN INDICATION
     Dosage: 80 MG, QD
     Route: 048
  8. DIOVAN [Suspect]
     Active Substance: VALSARTAN
     Indication: PRODUCT USED FOR UNKNOWN INDICATION
     Dosage: 80 MG, QD, MORNING
     Route: 065
     Dates: start: 20171226, end: 20180211
  9. TAKEPRON [Concomitant]
     Active Substance: LANSOPRAZOLE
     Indication: PRODUCT USED FOR UNKNOWN INDICATION
     Dosage: 30 MG, QD, MORNING
     Route: 065
     Dates: start: 20171226, end: 20180211
  10. SENNOSIDE [Concomitant]
     Active Substance: SENNOSIDES
     Indication: PRODUCT USED FOR UNKNOWN INDICATION
     Dosage: 12 MG, QD, VDS(BEFORE BED)
     Route: 065
     Dates: start: 20171226, end: 20180211
  11. ALDACTONE [Suspect]
     Active Substance: SPIRONOLACTONE
     Indication: PRODUCT USED FOR UNKNOWN INDICATION
     Dosage: 50 MG, QD, MORNING
     Route: 065
     Dates: start: 20171226, end: 20180211
  12. TRAZODONE [Concomitant]
     Active Substance: TRAZODONE HYDROCHLORIDE
     Indication: PRODUCT USED FOR UNKNOWN INDICATION
     Dosage: 25 MG, QD, VDS (BEFORE BED)
     Route: 065
     Dates: start: 20171226, end: 20180211
  13. LUPRAC [Concomitant]
     Active Substance: TORSEMIDE
     Indication: PRODUCT USED FOR UNKNOWN INDICATION
     Dosage: 4 MG, QD, MORNING
     Route: 065
     Dates: start: 20171226, end: 20180211

REACTIONS (4)
  - Hyperkalaemia [Fatal]
  - Cardiac failure congestive [Fatal]
  - Renal failure [Fatal]
  - Accidental overdose [Unknown]

NARRATIVE: CASE EVENT DATE: 20180211
